FAERS Safety Report 25485462 (Version 1)
Quarter: 2025Q2

REPORT INFORMATION
  Report Type: Spontaneous
  Country: CN (occurrence: CN)
  Receive Date: 20250626
  Receipt Date: 20250626
  Transmission Date: 20250717
  Serious: Yes (Hospitalization)
  Sender: PFIZER
  Company Number: CN-PFIZER INC-PV202500074657

PATIENT
  Age: 55 Year
  Sex: Female
  Weight: 56 kg

DRUGS (3)
  1. XALKORI [Suspect]
     Active Substance: CRIZOTINIB
     Indication: Lung carcinoma cell type unspecified stage IV
     Dosage: 250 MG, 2X/DAY
     Route: 048
     Dates: start: 20250509, end: 202505
  2. XALKORI [Suspect]
     Active Substance: CRIZOTINIB
     Dosage: 2X/DAY, ONCE A DAY, ALTERNATING ADMINISTRATION
     Route: 048
     Dates: start: 202505, end: 20250603
  3. XALKORI [Suspect]
     Active Substance: CRIZOTINIB
     Dosage: 2X/DAY, ONCE A DAY, ALTERNATING ADMINISTRATION
     Route: 048
     Dates: start: 202505, end: 20250603

REACTIONS (1)
  - Liver injury [Recovering/Resolving]

NARRATIVE: CASE EVENT DATE: 20250519
